FAERS Safety Report 6252110-4 (Version None)
Quarter: 2009Q2

REPORT INFORMATION
  Report Type: 
  Country: None (occurrence: None)
  Receive Date: 20090630
  Receipt Date: 20061023
  Transmission Date: 20091009
  Serious: Yes (Hospitalization)
  Sender: FDA-Public Use
  Company Number: US-ROCHE-638965

PATIENT
  Sex: Male

DRUGS (7)
  1. ENFUVIRTIDE [Suspect]
     Indication: HIV INFECTION
     Route: 065
     Dates: start: 20060815, end: 20061023
  2. TRUVADA [Concomitant]
     Dosage: DOSE: 1 TABLET, FREQUENCY: EVERY DAY (QD)
     Dates: start: 20060601, end: 20061023
  3. NORVIR [Concomitant]
     Dosage: FREQUENCY: DAILY (QD)
     Dates: start: 20060815, end: 20061023
  4. ZERIT [Concomitant]
     Dates: start: 20060815, end: 20061023
  5. BACTRIM DS [Concomitant]
     Dates: start: 20060606, end: 20061023
  6. DIFLUCAN [Concomitant]
     Dosage: FREQUENCY: DAILY (QD)
     Dates: start: 20060606, end: 20061023
  7. ZITHROMAX [Concomitant]
     Dates: start: 20060606, end: 20061023

REACTIONS (1)
  - CENTRAL NERVOUS SYSTEM LESION [None]
